FAERS Safety Report 5489301-6 (Version None)
Quarter: 2007Q4

REPORT INFORMATION
  Report Type: 
  Country: None (occurrence: None)
  Receive Date: 20071005
  Receipt Date: 20070630
  Transmission Date: 20080405
  Serious: No
  Sender: FDA-Public Use
  Company Number: PHEH2007US09564

PATIENT
  Sex: Female

DRUGS (5)
  1. TEKTURNA [Suspect]
     Indication: HYPERTENSION
     Dosage: 150 MG, ORAL
     Route: 048
     Dates: start: 20070626
  2. CLONIDINE [Suspect]
     Dosage: 1 MG, QD, ORAL
     Route: 048
     Dates: start: 20070201, end: 20070623
  3. SYNTHROID [Concomitant]
  4. ATIVAN [Concomitant]
  5. ACETAMINOPHEN [Concomitant]

REACTIONS (5)
  - BLOOD PRESSURE INADEQUATELY CONTROLLED [None]
  - BLOOD PRESSURE INCREASED [None]
  - MALAISE [None]
  - NAUSEA [None]
  - TREMOR [None]
